FAERS Safety Report 8951183 (Version 1)
Quarter: 2012Q4

REPORT INFORMATION
  Report Type: 
  Country: US (occurrence: US)
  Receive Date: 20121207
  Receipt Date: 20121207
  Transmission Date: 20130627
  Serious: Yes (Other)
  Sender: FDA-Public Use
  Company Number: PHEH2012US023576

PATIENT
  Sex: Male

DRUGS (3)
  1. DIOVAN HCT [Suspect]
  2. DIOVAN [Suspect]
  3. NEXIUM [Concomitant]

REACTIONS (1)
  - Thyroid cancer [Unknown]
